FAERS Safety Report 24140697 (Version 2)
Quarter: 2024Q3

REPORT INFORMATION
  Report Type: Report from Study
  Country: GB (occurrence: GB)
  Receive Date: 20240726
  Receipt Date: 20240904
  Transmission Date: 20241016
  Serious: Yes (Other)
  Sender: SANDOZ
  Company Number: GB-SANDOZ-SDZ2024GB006835

PATIENT
  Sex: Female

DRUGS (1)
  1. HYRIMOZ [Suspect]
     Active Substance: ADALIMUMAB-ADAZ
     Indication: Spinal osteoarthritis
     Dosage: 40 MG, Q2W(40MG/0.4ML SOLUTION FOR INJECTION PRE-FILLED PEN)
     Route: 058
     Dates: start: 20231211

REACTIONS (17)
  - Precancerous condition [Unknown]
  - Self-injurious ideation [Unknown]
  - Frustration tolerance decreased [Unknown]
  - Stress [Unknown]
  - Mental disorder [Unknown]
  - COVID-19 [Unknown]
  - Fatigue [Unknown]
  - Malaise [Unknown]
  - Peripheral swelling [Unknown]
  - Muscle spasms [Unknown]
  - Fungal infection [Unknown]
  - Urinary tract infection [Unknown]
  - Candida infection [Unknown]
  - Viral infection [Unknown]
  - Ear infection [Unknown]
  - Drug intolerance [Unknown]
  - Product supply issue [Unknown]
